FAERS Safety Report 5088920-9 (Version None)
Quarter: 2006Q3

REPORT INFORMATION
  Report Type: 
  Country: None (occurrence: None)
  Receive Date: 20060824
  Receipt Date: 20060824
  Transmission Date: 20061208
  Serious: No
  Sender: FDA-Public Use
  Company Number: None

PATIENT
  Sex: Female
  Weight: 67.1324 kg

DRUGS (1)
  1. VENOFER [Suspect]
     Indication: ANAEMIA
     Dosage: 300MG  QWEEK X 3 DOSES IV DRIP
     Route: 041
     Dates: start: 20060816, end: 20060823

REACTIONS (2)
  - BACK PAIN [None]
  - DRUG EXPOSURE DURING PREGNANCY [None]
